FAERS Safety Report 8963981 (Version 1)
Quarter: 2012Q4

REPORT INFORMATION
  Report Type: 
  Country: US (occurrence: US)
  Receive Date: 20121214
  Receipt Date: 20121214
  Transmission Date: 20130627
  Serious: No
  Sender: FDA-Public Use
  Company Number: US-009507513-1212USA002948

PATIENT
  Age: 17 Year
  Sex: Female

DRUGS (1)
  1. NUVARING [Suspect]
     Indication: CONTRACEPTION
     Dosage: 0.120 mg etonogestrel/0.015 mg/ ethinyl estradiol
     Route: 067

REACTIONS (1)
  - Urticaria [Recovered/Resolved]
